FAERS Safety Report 8395454-2 (Version None)
Quarter: 2012Q2

REPORT INFORMATION
  Report Type: 
  Country: None (occurrence: None)
  Receive Date: 20120530
  Receipt Date: 20120523
  Transmission Date: 20120825
  Serious: No
  Sender: FDA-Public Use
  Company Number: US-TEVA-339819USA

PATIENT
  Sex: Female

DRUGS (4)
  1. SINEMET [Concomitant]
  2. ROSUVASTATIN [Concomitant]
  3. AZILECT [Suspect]
     Indication: PARKINSON'S DISEASE
     Route: 048
     Dates: start: 20120301
  4. MULTI-VITAMIN [Concomitant]

REACTIONS (2)
  - HYPOTENSION [None]
  - DIZZINESS POSTURAL [None]
